FAERS Safety Report 6335161-0 (Version None)
Quarter: 2009Q3

REPORT INFORMATION
  Report Type: 
  Country: None (occurrence: None)
  Receive Date: 20090828
  Receipt Date: 20090828
  Transmission Date: 20100115
  Serious: Yes (Life-Threatening)
  Sender: FDA-Public Use
  Company Number: None

PATIENT
  Sex: Female
  Weight: 70.3075 kg

DRUGS (1)
  1. GLUCOTROL XL [Suspect]
     Indication: DIABETES MELLITUS
     Dates: start: 20090802, end: 20090825

REACTIONS (6)
  - DYSPHAGIA [None]
  - DYSPNOEA [None]
  - PRODUCT COLOUR ISSUE [None]
  - PRODUCT SUBSTITUTION ISSUE [None]
  - RASH [None]
  - THROAT IRRITATION [None]
